FAERS Safety Report 12887348 (Version 1)
Quarter: 2016Q4

REPORT INFORMATION
  Report Type: Report from Study
  Country: US (occurrence: US)
  Receive Date: 20161026
  Receipt Date: 20161026
  Transmission Date: 20170207
  Serious: Yes (Death, Life-Threatening, Hospitalization)
  Sender: FDA-Public Use
  Company Number: US-JAZZ-2016-US-010791

PATIENT
  Age: 27 Year
  Sex: Male
  Weight: 88.6 kg

DRUGS (14)
  1. ENTECAVIR. [Concomitant]
     Active Substance: ENTECAVIR
     Indication: INFECTION PROPHYLAXIS
     Dosage: 1 MG, UNK
     Route: 048
     Dates: start: 20160220, end: 20160308
  2. MICAFUNGIN [Concomitant]
     Active Substance: MICAFUNGIN
     Indication: INFECTION PROPHYLAXIS
     Dosage: 100 MG, UNK
     Route: 042
     Dates: start: 20160209, end: 20160324
  3. DEFIBROTIDE (INV) [Suspect]
     Active Substance: DEFIBROTIDE SODIUM
     Indication: VENOOCCLUSIVE LIVER DISEASE
     Dosage: 25 MG/KG
     Route: 042
     Dates: start: 20160123, end: 20160317
  4. DOCUSATE [Concomitant]
     Active Substance: DOCUSATE
     Indication: PROPHYLAXIS
     Dosage: 200 MG, UNK
     Route: 048
     Dates: start: 20160220, end: 20160330
  5. PANTOPRAZOLE [Concomitant]
     Active Substance: PANTOPRAZOLE SODIUM
     Indication: PROPHYLAXIS
     Dosage: 80 MG, UNK
     Route: 042
     Dates: start: 20160129, end: 20160330
  6. CEFEPIME [Concomitant]
     Active Substance: CEFEPIME HYDROCHLORIDE
     Indication: INFECTION PROPHYLAXIS
     Dosage: 4 G, UNK
     Route: 042
     Dates: start: 20160319, end: 20160323
  7. ATOVAQUONE. [Concomitant]
     Active Substance: ATOVAQUONE
     Indication: INFECTION PROPHYLAXIS
     Dosage: 1500 MG, UNK
     Route: 048
     Dates: start: 20160220, end: 20160330
  8. BUMETANIDE. [Concomitant]
     Active Substance: BUMETANIDE
     Indication: OEDEMA
     Dosage: 12 MG, UNK
     Route: 042
     Dates: start: 20160304, end: 20160304
  9. METRONIDAZOLE. [Concomitant]
     Active Substance: METRONIDAZOLE
     Indication: INFECTION PROPHYLAXIS
     Dosage: 1500 MG, UNK
     Route: 042
     Dates: start: 20160215, end: 20160304
  10. MEROPENEM. [Concomitant]
     Active Substance: MEROPENEM
     Indication: PROPHYLAXIS
     Dosage: 3 G, UNK
     Route: 042
     Dates: start: 20160302, end: 20160308
  11. METOCLOPRAMIDE. [Concomitant]
     Active Substance: METOCLOPRAMIDE
     Indication: NAUSEA
     Dosage: 40 MG, UNK
     Route: 042
     Dates: start: 20160131, end: 20160311
  12. TACROLIMUS. [Concomitant]
     Active Substance: TACROLIMUS
     Indication: GRAFT VERSUS HOST DISEASE
     Dosage: 0.1 MG, UNK
     Route: 042
     Dates: start: 20160219, end: 20160310
  13. SPIRONOLACTONE. [Concomitant]
     Active Substance: SPIRONOLACTONE
     Indication: OEDEMA
     Dosage: 200 MG, UNK
     Route: 048
     Dates: start: 20160218, end: 20160309
  14. INSULIN [Concomitant]
     Active Substance: INSULIN NOS
     Indication: HYPERGLYCAEMIA
     Dosage: SLIDING SCALE
     Route: 058
     Dates: start: 20160302, end: 20160330

REACTIONS (3)
  - Venoocclusive liver disease [Not Recovered/Not Resolved]
  - Graft versus host disease in liver [Not Recovered/Not Resolved]
  - Systemic candida [Fatal]

NARRATIVE: CASE EVENT DATE: 20160304
